FAERS Safety Report 25877394 (Version 1)
Quarter: 2025Q4

REPORT INFORMATION
  Report Type: Spontaneous
  Country: US (occurrence: US)
  Receive Date: 20251003
  Receipt Date: 20251003
  Transmission Date: 20260117
  Serious: No
  Sender: ROCHE
  Company Number: US-ROCHE-10000401908

PATIENT
  Age: 70 Year
  Sex: Female

DRUGS (10)
  1. XOLAIR [Suspect]
     Active Substance: OMALIZUMAB
     Indication: Asthma
     Dosage: INJECT 75MG SUBCUTANEOUS WITH 150MG PEN FOR TOTAL DOSE OF 225MG EVERY 14 DAYS.
     Route: 058
  2. ALBUTEROL SULFATE [Concomitant]
     Active Substance: ALBUTEROL SULFATE
     Dosage: AER 108-90
  3. BIKTARVY [Concomitant]
     Active Substance: BICTEGRAVIR SODIUM\EMTRICITABINE\TENOFOVIR ALAFENAMIDE FUMARATE
     Dosage: 30-120-1MG
  4. BUDESONIDE [Concomitant]
     Active Substance: BUDESONIDE
     Dosage: 0.5MG/2ML
  5. IBUPROFEN [Concomitant]
     Active Substance: IBUPROFEN
  6. ISOSORBIDE [Concomitant]
     Active Substance: ISOSORBIDE
  7. LOSARTAN POTASSIUM [Concomitant]
     Active Substance: LOSARTAN POTASSIUM
  8. MONTELUKAST [Concomitant]
     Active Substance: MONTELUKAST
  9. ROSUVASTATIN [Concomitant]
     Active Substance: ROSUVASTATIN
  10. SYMBICORT [Concomitant]
     Active Substance: BUDESONIDE\FORMOTEROL FUMARATE DIHYDRATE
     Dosage: 160-4.5MCG

REACTIONS (2)
  - Product dose omission issue [Unknown]
  - No adverse event [Unknown]

NARRATIVE: CASE EVENT DATE: 20250930
